FAERS Safety Report 14513982 (Version 1)
Quarter: 2018Q1

REPORT INFORMATION
  Report Type: Spontaneous
  Country: US (occurrence: US)
  Receive Date: 20180208
  Receipt Date: 20180208
  Transmission Date: 20180509
  Serious: Yes (Life-Threatening, Other)
  Sender: FDA-Public Use
  Company Number: None

PATIENT
  Age: 70 Year
  Sex: Female
  Weight: 72.9 kg

DRUGS (7)
  1. VITAMIN B12 [Concomitant]
     Active Substance: CYANOCOBALAMIN
  2. GABAPENTIN. [Suspect]
     Active Substance: GABAPENTIN
     Indication: MUSCULOSKELETAL PAIN
     Dosage: ?          QUANTITY:1 CAPSULE(S);?
     Route: 048
     Dates: start: 20170711, end: 20171231
  3. VITAMIN D [Concomitant]
     Active Substance: CHOLECALCIFEROL
  4. THIAMIN [Concomitant]
     Active Substance: THIAMINE
  5. VITAMIN B [Concomitant]
     Active Substance: VITAMIN B
  6. FOLIC ACID. [Concomitant]
     Active Substance: FOLIC ACID
  7. LOSARTAN POTASSIUM. [Concomitant]
     Active Substance: LOSARTAN POTASSIUM

REACTIONS (12)
  - Arthralgia [None]
  - Limb discomfort [None]
  - Hypertension [None]
  - Feeling abnormal [None]
  - Low density lipoprotein increased [None]
  - Depressed level of consciousness [None]
  - Paraesthesia [None]
  - Malaise [None]
  - Somnolence [None]
  - Anxiety [None]
  - Burning sensation [None]
  - Panic attack [None]

NARRATIVE: CASE EVENT DATE: 20171003
